FAERS Safety Report 15558111 (Version 1)
Quarter: 2018Q4

REPORT INFORMATION
  Report Type: Spontaneous
  Country: US (occurrence: US)
  Receive Date: 20181027
  Receipt Date: 20181027
  Transmission Date: 20190205
  Serious: No
  Sender: FDA-Public Use
  Company Number: US-IPSEN BIOPHARMACEUTICALS, INC.-2018-16064

PATIENT
  Age: 60 Year
  Sex: Female

DRUGS (6)
  1. SCULPTRA AESTHETIC [Suspect]
     Active Substance: POLYLACTIDE, L-
     Indication: SKIN WRINKLING
     Dosage: 10 ML IN EACH ARM
     Dates: start: 20180112
  2. MAXZIDE [Concomitant]
     Active Substance: HYDROCHLOROTHIAZIDE\TRIAMTERENE
     Dates: start: 2015
  3. DYSPORT [Suspect]
     Active Substance: ABOBOTULINUMTOXINA
     Indication: SKIN COSMETIC PROCEDURE
     Dosage: DOSE NOT REPORTED
     Dates: start: 20180112, end: 20180112
  4. RESTYLANE LYFT [Suspect]
     Active Substance: HYALURONIC ACID
     Indication: SKIN COSMETIC PROCEDURE
     Dates: start: 20180112
  5. POTASSIUM [Concomitant]
     Active Substance: POTASSIUM
     Dates: start: 2015
  6. SIMVISTATIN [Concomitant]
     Active Substance: SIMVASTATIN
     Dates: start: 2015

REACTIONS (1)
  - Swelling [Not Recovered/Not Resolved]
